FAERS Safety Report 4888240-9 (Version None)
Quarter: 2006Q1

REPORT INFORMATION
  Report Type: 
  Country: None (occurrence: None)
  Receive Date: 20060123
  Receipt Date: 20060105
  Transmission Date: 20060701
  Serious: Yes (Other)
  Sender: FDA-Public Use
  Company Number: PHNU2006DE00480

PATIENT

DRUGS (2)
  1. IMMUNOSPORIN [Suspect]
     Indication: PSORIATIC ARTHROPATHY
  2. GLIBENCLAMIDE [Suspect]
     Indication: DIABETES MELLITUS

REACTIONS (2)
  - BLOOD GLUCOSE INCREASED [None]
  - DRUG INTERACTION [None]
